FAERS Safety Report 12069243 (Version 2)
Quarter: 2016Q3

REPORT INFORMATION
  Report Type: Spontaneous
  Country: JP (occurrence: JP)
  Receive Date: 20160211
  Receipt Date: 20160713
  Transmission Date: 20161109
  Serious: Yes (Hospitalization, Other)
  Sender: FDA-Public Use
  Company Number: JP-BRISTOL-MYERS SQUIBB COMPANY-BMS-2016-002111

PATIENT
  Age: 63 Year
  Sex: Male

DRUGS (5)
  1. NIVOLUMAB BMS [Suspect]
     Active Substance: NIVOLUMAB
     Dosage: 1 MG/KG, QD
     Route: 041
     Dates: start: 20151008, end: 20151008
  2. NIVOLUMAB BMS [Suspect]
     Active Substance: NIVOLUMAB
     Indication: NON-SMALL CELL LUNG CANCER
     Dosage: 1 MG/KG, QD 50MG
     Route: 041
     Dates: start: 201509, end: 20151009
  3. NIVOLUMAB BMS [Suspect]
     Active Substance: NIVOLUMAB
     Dosage: 1 MG/KG, QD
     Route: 041
     Dates: start: 20151026, end: 20151026
  4. NIVOLUMAB BMS [Suspect]
     Active Substance: NIVOLUMAB
     Dosage: 1 MG/KG, QD
     Route: 041
     Dates: start: 20151121, end: 20151121
  5. NIVOLUMAB BMS [Suspect]
     Active Substance: NIVOLUMAB
     Dosage: 1 MG/KG, QD
     Route: 041
     Dates: start: 20151212, end: 20151212

REACTIONS (4)
  - Diabetes mellitus [Unknown]
  - Off label use [Unknown]
  - Interstitial lung disease [Recovered/Resolved]
  - Underdose [Unknown]

NARRATIVE: CASE EVENT DATE: 201601
